FAERS Safety Report 4366420-9 (Version None)
Quarter: 2004Q2

REPORT INFORMATION
  Report Type: 
  Country: None (occurrence: None)
  Receive Date: 20040527
  Receipt Date: 20040317
  Transmission Date: 20050107
  Serious: No
  Sender: FDA-Public Use
  Company Number: US-BRISTOL-MYERS SQUIBB COMPANY-12535472

PATIENT
  Age: 24 Year
  Sex: Male
  Weight: 109 kg

DRUGS (5)
  1. ERBITUX [Suspect]
     Indication: COLON CANCER
     Route: 042
     Dates: start: 20040308, end: 20040308
  2. ATROPINE [Concomitant]
     Indication: PREMEDICATION
  3. LIPITOR [Concomitant]
  4. COUMADIN [Concomitant]
  5. ADVIL [Concomitant]

REACTIONS (1)
  - ACNE [None]
